FAERS Safety Report 20362402 (Version 3)
Quarter: 2022Q1

REPORT INFORMATION
  Report Type: Spontaneous
  Country: US (occurrence: None)
  Receive Date: 20220121
  Receipt Date: 20220211
  Transmission Date: 20220423
  Serious: Yes (Other)
  Sender: FDA-Public Use
  Company Number: 2022A025665

PATIENT
  Age: 832 Month
  Sex: Male
  Weight: 90.7 kg

DRUGS (3)
  1. BYDUREON BCISE [Suspect]
     Active Substance: EXENATIDE
     Indication: Type 2 diabetes mellitus
     Route: 058
  2. BYDUREON [Suspect]
     Active Substance: EXENATIDE
     Indication: Type 2 diabetes mellitus
     Route: 058
  3. INSULIN NOS [Concomitant]
     Active Substance: INSULIN NOS

REACTIONS (11)
  - Coronary artery occlusion [Unknown]
  - Angina pectoris [Unknown]
  - Prostate cancer [Not Recovered/Not Resolved]
  - Chest discomfort [Unknown]
  - Injection site injury [Unknown]
  - Asthenia [Recovering/Resolving]
  - Injection site pain [Unknown]
  - Device difficult to use [Unknown]
  - Device leakage [Unknown]
  - Device malfunction [Unknown]
  - Device use issue [Unknown]

NARRATIVE: CASE EVENT DATE: 20150501
